FAERS Safety Report 18577871 (Version 2)
Quarter: 2020Q4

REPORT INFORMATION
  Report Type: Spontaneous
  Country: RO (occurrence: RO)
  Receive Date: 20201204
  Receipt Date: 20201228
  Transmission Date: 20210114
  Serious: Yes (Other)
  Sender: FDA-Public Use
  Company Number: RO-SUN PHARMACEUTICAL INDUSTRIES LTD-2020RR-269794

PATIENT
  Age: 50 Year
  Sex: Female

DRUGS (3)
  1. LANREOTIDE AUTOGEL [Suspect]
     Active Substance: LANREOTIDE
     Indication: SOMATOSTATINOMA
     Dosage: 120 MILLIGRAM EVERY 28 DAYS
     Route: 065
  2. TEMOZOLOMIDE ACCORD [Suspect]
     Active Substance: TEMOZOLOMIDE
     Indication: SOMATOSTATINOMA
     Dosage: 200 MILLIGRAM/SQ. METER, ID, ON DAYS 10-14
     Route: 065
  3. CAPECITABINE ACCORD [Suspect]
     Active Substance: CAPECITABINE
     Indication: SOMATOSTATINOMA
     Dosage: 750 MILLIGRAM/SQ. METER, BID, ON DAYS 1-14
     Route: 065

REACTIONS (5)
  - Therapeutic product effect incomplete [Unknown]
  - Thrombocytopenia [Unknown]
  - Metastases to liver [Unknown]
  - Palmar-plantar erythrodysaesthesia syndrome [Unknown]
  - Diarrhoea [Recovering/Resolving]
